FAERS Safety Report 11691977 (Version 2)
Quarter: 2015Q4

REPORT INFORMATION
  Report Type: Report from Study
  Country: IN (occurrence: IN)
  Receive Date: 20151103
  Receipt Date: 20151222
  Transmission Date: 20160304
  Serious: Yes (Hospitalization)
  Sender: FDA-Public Use
  Company Number: IN-AMGEN-INDCT2015114545

PATIENT
  Age: 55 Year
  Sex: Female

DRUGS (43)
  1. GLYCOMET-GP [Concomitant]
     Dosage: 502 MG, 2X/DAY
     Route: 048
     Dates: start: 20121105, end: 20130715
  2. MEDROL [Concomitant]
     Active Substance: METHYLPREDNISOLONE
     Dosage: 4 MG, DAILY
     Route: 048
     Dates: start: 20130322, end: 20130403
  3. GLYCOMET GP [Concomitant]
     Dosage: 501 MG, DAILY
     Route: 048
     Dates: start: 20130322, end: 20130403
  4. DOLO                               /00020001/ [Concomitant]
     Dosage: 650 MG, DAILY
     Route: 048
     Dates: start: 20121105, end: 20130105
  5. LEFRA [Concomitant]
     Dosage: 10 MG, DAILY
     Route: 048
     Dates: start: 20130221, end: 20130403
  6. RAZO D [Concomitant]
     Dosage: 20 UNK, DAILY
     Route: 048
     Dates: start: 20130221
  7. BUDAMATE [Concomitant]
     Indication: LOWER RESPIRATORY TRACT INFECTION
     Dosage: 200 MUG, 4X/DAY
     Route: 055
     Dates: start: 20130903, end: 20130910
  8. ASCORIL [Concomitant]
     Indication: LOWER RESPIRATORY TRACT INFECTION
     Dosage: 5 ML, 3X/DAY
     Route: 048
     Dates: start: 20130903, end: 20130910
  9. WAL PROFEN COLD AND SINUS [Concomitant]
     Active Substance: IBUPROFEN\PSEUDOEPHEDRINE HYDROCHLORIDE
     Dosage: 500 MG, DAILY
     Route: 048
     Dates: start: 20121004, end: 20130220
  10. CHOLECALCIFEROL [Concomitant]
     Active Substance: CHOLECALCIFEROL
     Dosage: 60000 IU, WEEKLY
     Route: 048
     Dates: start: 20130103, end: 20130220
  11. CHOLECALCIFEROL [Concomitant]
     Active Substance: CHOLECALCIFEROL
     Dosage: 60000 IU, WEEKLY
     Route: 048
     Dates: start: 20130917
  12. TELMIKIND-H [Concomitant]
     Indication: HYPERTENSION
     Dosage: 80 MG, DAILY
     Route: 048
     Dates: start: 20120221, end: 20130708
  13. METFORMIN HYDROCHLORIDE EXTENDED RELEASE [Concomitant]
     Active Substance: METFORMIN HYDROCHLORIDE
     Indication: DIABETES MELLITUS
     Dosage: 500 MG, DAILY
     Route: 048
     Dates: start: 20120221
  14. ASPIRIN. [Concomitant]
     Active Substance: ASPIRIN
     Dosage: 75 MG, 1X/DAY
     Route: 048
     Dates: start: 20121206
  15. DOLO                               /00020001/ [Concomitant]
     Dosage: 650 MG, DAILY
     Route: 048
     Dates: start: 20130322, end: 20130403
  16. CHOLECALCIFEROL [Concomitant]
     Active Substance: CHOLECALCIFEROL
     Dosage: 60000 IU, 1 IN 2 WK
     Route: 048
     Dates: start: 20121105, end: 20130102
  17. LEVOFLOX [Concomitant]
     Indication: LOWER RESPIRATORY TRACT INFECTION
     Dosage: 500 MG, 1X/DAY
     Route: 048
     Dates: start: 20130903, end: 20130910
  18. FLEXABENZ [Concomitant]
     Dosage: 1.5 G, 1X/DAY
     Route: 050
     Dates: start: 20140806
  19. ETANERCEPT [Suspect]
     Active Substance: ETANERCEPT
     Indication: RHEUMATOID ARTHRITIS
     Dosage: 50 MG, WEEKLY
     Route: 058
  20. CREMAFFIN [Concomitant]
     Dosage: 15 ML, DAILY
     Route: 048
     Dates: start: 20130221
  21. MEDROL [Concomitant]
     Active Substance: METHYLPREDNISOLONE
     Dosage: 2 MG, DAILY
     Route: 048
     Dates: start: 20130310, end: 20130326
  22. GLYCOMET GP [Concomitant]
     Dosage: 1002 MG, DAILY
     Route: 048
     Dates: start: 20130404, end: 20130609
  23. TELMA-H [Concomitant]
     Indication: HYPERTENSION
     Dosage: 80 MG, DAILY
     Route: 048
     Dates: start: 20130709
  24. MIXTARD                            /00806401/ [Concomitant]
     Indication: DIABETES MELLITUS
     Dosage: 20 UNITS, 2X/DAY
     Route: 058
     Dates: start: 20130715
  25. STAMLO [Concomitant]
     Active Substance: AMLODIPINE BESYLATE
     Indication: HYPERTENSION
     Dosage: 5 MUG, DAILY
     Route: 048
     Dates: start: 20130610, end: 20130709
  26. LEFRA [Concomitant]
     Dosage: 20 MG, 1X/DAY
     Dates: start: 20130404, end: 20130715
  27. DEFCORT [Concomitant]
     Dosage: 3 MG, DAILY
     Route: 048
     Dates: start: 20121004, end: 20130220
  28. ECOSPRIN AV [Concomitant]
     Dosage: 75 MG, DAILY
     Route: 048
     Dates: start: 20121004, end: 20121205
  29. LIVOGEN [Concomitant]
     Indication: HYPERTENSION
     Dosage: 153.5 MG, DAILY
     Route: 048
     Dates: start: 20130221
  30. ACTRAPID [Concomitant]
     Active Substance: INSULIN HUMAN
     Indication: DIABETES MELLITUS
     Dosage: 240 IU, 1X/DAY
     Route: 058
     Dates: start: 20131205
  31. MEDROL [Concomitant]
     Active Substance: METHYLPREDNISOLONE
     Dosage: 2 MG, DAILY
     Route: 048
     Dates: start: 20130404
  32. MEDROL [Concomitant]
     Active Substance: METHYLPREDNISOLONE
     Dosage: 4 UNK, DAILY
     Route: 048
     Dates: start: 20130221
  33. DOLO                               /00020001/ [Concomitant]
     Dosage: 650 MG, DAILY
     Route: 048
     Dates: start: 20130609
  34. LIVOGEN                            /00172901/ [Concomitant]
     Indication: HYPERTENSION
     Dosage: 153.5 MG, DAILY
     Route: 048
     Dates: start: 20130221
  35. FOLITRAX                           /00113801/ [Concomitant]
     Indication: RHEUMATOID ARTHRITIS
     Dosage: 15 MG, 1 IN 2 WK
     Route: 058
     Dates: start: 20121206
  36. FOLVITE                            /00024201/ [Concomitant]
     Indication: ANAEMIA
     Dosage: 5 MG, DAILY
     Route: 048
     Dates: start: 20120221
  37. FOLVITE [Concomitant]
     Active Substance: FOLIC ACID
     Indication: ANAEMIA
     Dosage: 5 MG, DAILY
     Route: 048
     Dates: start: 20120221
  38. ATORVASTATIN [Concomitant]
     Active Substance: ATORVASTATIN
     Indication: HYPERLIPIDAEMIA
     Dosage: 20 MG, 1X/DAY
     Dates: start: 20150421
  39. PAN [Concomitant]
     Dosage: 40 MG, DAILY
     Route: 048
     Dates: start: 20120829, end: 20121205
  40. GLYCOMET GP [Concomitant]
     Indication: DIABETES MELLITUS
     Dosage: 501 MG, DAILY
     Route: 048
     Dates: start: 20120221, end: 20121104
  41. GLYCOMET GP [Concomitant]
     Dosage: 500 MG, DAILY
     Route: 048
     Dates: start: 20120221, end: 20121104
  42. CHOLECALCIFEROL [Concomitant]
     Active Substance: CHOLECALCIFEROL
     Dosage: 60000 IU, WEEKLY
     Route: 048
     Dates: start: 20130903, end: 20130916
  43. GLYCOMET-GP [Concomitant]
     Indication: DIABETES MELLITUS
     Dosage: 500 UNK, UNK
     Route: 048
     Dates: start: 20120221, end: 20121104

REACTIONS (1)
  - Sinoatrial block [Recovered/Resolved]

NARRATIVE: CASE EVENT DATE: 20151013
